FAERS Safety Report 10234304 (Version 1)
Quarter: 2014Q2

REPORT INFORMATION
  Report Type: Spontaneous
  Country: CN (occurrence: CN)
  Receive Date: 20140612
  Receipt Date: 20140612
  Transmission Date: 20141212
  Serious: Yes (Hospitalization, Other)
  Sender: FDA-Public Use
  Company Number: CN-GILEAD-2014-0104868

PATIENT
  Sex: Male

DRUGS (3)
  1. HEPSERA [Suspect]
     Indication: CHRONIC HEPATITIS B
     Dosage: 10 MG PER DAY
     Route: 048
     Dates: start: 20111224, end: 20131028
  2. HEPTODIN [Suspect]
     Indication: CHRONIC HEPATITIS B
     Dosage: 100 MG PER DAY
     Route: 048
     Dates: start: 20111224, end: 20131028
  3. HEPTODIN [Suspect]
     Dosage: 10 MG PER DAY
     Route: 048
     Dates: start: 20111224, end: 20131028

REACTIONS (4)
  - Osteomalacia [Not Recovered/Not Resolved]
  - Back pain [Not Recovered/Not Resolved]
  - Blood phosphorus decreased [Not Recovered/Not Resolved]
  - Headache [Not Recovered/Not Resolved]
